FAERS Safety Report 7219169-9 (Version None)
Quarter: 2011Q1

REPORT INFORMATION
  Report Type: 
  Country: None (occurrence: None)
  Receive Date: 20110103
  Receipt Date: 20101217
  Transmission Date: 20110831
  Serious: Yes (Hospitalization)
  Sender: FDA-Public Use
  Company Number: CIO10018089

PATIENT
  Age: 55 Year
  Sex: Male

DRUGS (1)
  1. PEPTO-BISMOL, VERSION/FLAVOR UNKNOWN (BISMUTH SUBSALICYLATE 262 OR 525 [Suspect]
     Indication: PROPHYLAXIS AGAINST DIARRHOEA
     Dosage: 30ML, 3/DAY, ORAL
     Route: 048

REACTIONS (5)
  - BACTERIAL SEPSIS [None]
  - VIBRIO TEST POSITIVE [None]
  - HEPATOBILIARY SCAN ABNORMAL [None]
  - GALLBLADDER EMPYEMA [None]
  - CHOLECYSTITIS INFECTIVE [None]
